FAERS Safety Report 20154746 (Version 3)
Quarter: 2022Q1

REPORT INFORMATION
  Report Type: Report from Study
  Country: BR (occurrence: BR)
  Receive Date: 20211207
  Receipt Date: 20220310
  Transmission Date: 20220423
  Serious: Yes (Other)
  Sender: FDA-Public Use
  Company Number: BR-NOVARTISPH-NVSC2021BR277774

PATIENT
  Sex: Male
  Weight: 99.7 kg

DRUGS (7)
  1. METFORMIN HYDROCHLORIDE\VILDAGLIPTIN [Suspect]
     Active Substance: METFORMIN HYDROCHLORIDE\VILDAGLIPTIN
     Indication: Diabetes mellitus
     Dosage: (500 TO 1000) STARTED 17 YEARS AGO
     Route: 065
  2. METFORMIN HYDROCHLORIDE\VILDAGLIPTIN [Suspect]
     Active Substance: METFORMIN HYDROCHLORIDE\VILDAGLIPTIN
     Dosage: 1 DOSAGE FORM, QD (ABOUT 16 YEARS)
     Route: 048
  3. VILDAGLIPTIN [Suspect]
     Active Substance: VILDAGLIPTIN
     Indication: Diabetes mellitus
     Dosage: 1 DOSAGE FORM, QD (ABOUT 3 MONTHS)
     Route: 048
  4. CHLORIDE ION [Concomitant]
     Active Substance: CHLORIDE ION
     Indication: Hypophosphataemia
     Dosage: 1 DOSAGE FORM, QD (ABOUT 16 YEARS)
     Route: 048
  5. CEFALIV [Concomitant]
     Indication: Migraine
     Dosage: 1 DOSAGE FORM, QD (ABOUT 16 YEARS)
     Route: 048
  6. SIMETHICONE (DIMETHICONE) [Concomitant]
     Active Substance: DIMETHICONE
     Indication: Flatulence
     Dosage: 1 DOSAGE FORM, QD (ABOUT 16 YEARS)
     Route: 048
  7. GABAPENTIN [Concomitant]
     Active Substance: GABAPENTIN
     Indication: Shock
     Dosage: 1 DOSAGE FORM, QD (ABOUT 16 YEARS)
     Route: 048

REACTIONS (3)
  - Blindness [Recovering/Resolving]
  - Diabetic nephropathy [Not Recovered/Not Resolved]
  - Peripheral swelling [Not Recovered/Not Resolved]
